FAERS Safety Report 17554381 (Version 2)
Quarter: 2020Q1

REPORT INFORMATION
  Report Type: Report from Study
  Country: None (occurrence: US)
  Receive Date: 20200318
  Receipt Date: 20200331
  Transmission Date: 20200409
  Serious: Yes (Other)
  Sender: FDA-Public Use
  Company Number: US-ABBVIE-19K-163-2946111-00

PATIENT
  Sex: Male

DRUGS (1)
  1. HUMIRA [Suspect]
     Active Substance: ADALIMUMAB
     Indication: PSORIATIC ARTHROPATHY
     Dosage: CITRATE FREE
     Route: 058

REACTIONS (10)
  - Thrombosis [Not Recovered/Not Resolved]
  - Back pain [Not Recovered/Not Resolved]
  - Systemic lupus erythematosus [Not Recovered/Not Resolved]
  - Hyperkeratosis [Not Recovered/Not Resolved]
  - Diabetes mellitus [Recovering/Resolving]
  - Onychomadesis [Not Recovered/Not Resolved]
  - Weight decreased [Recovered/Resolved]
  - Chronic kidney disease [Recovering/Resolving]
  - Pancreatic failure [Recovering/Resolving]
  - Contusion [Not Recovered/Not Resolved]
